FAERS Safety Report 21120652 (Version 1)
Quarter: 2022Q3

REPORT INFORMATION
  Report Type: Spontaneous
  Country: US (occurrence: None)
  Receive Date: 20220722
  Receipt Date: 20220722
  Transmission Date: 20221027
  Serious: No
  Sender: FDA-Public Use
  Company Number: None

PATIENT
  Sex: Female

DRUGS (1)
  1. STELARA [Suspect]
     Active Substance: USTEKINUMAB
     Indication: Crohn^s disease
     Dosage: OTHER QUANTITY : 90MG/1ML;?OTHER FREQUENCY : EVERY 6 WEEKS;?
     Route: 058
     Dates: start: 20220201

REACTIONS (5)
  - Drug ineffective [None]
  - Abdominal distension [None]
  - Fatigue [None]
  - Arthralgia [None]
  - Abdominal pain upper [None]
